FAERS Safety Report 6391701-7 (Version None)
Quarter: 2009Q4

REPORT INFORMATION
  Report Type: 
  Country: None (occurrence: None)
  Receive Date: 20091007
  Receipt Date: 20090928
  Transmission Date: 20100525
  Serious: Yes (Hospitalization, Other)
  Sender: FDA-Public Use
  Company Number: FR-ABBOTT-09P-056-0596246-00

PATIENT
  Sex: Male
  Weight: 91 kg

DRUGS (9)
  1. HUMIRA [Suspect]
     Indication: RHEUMATOID ARTHRITIS
     Route: 058
     Dates: start: 20090601, end: 20090901
  2. NOVATREX [Suspect]
     Indication: RHEUMATOID ARTHRITIS
     Dosage: 6 TABLETS A WEEK
     Route: 048
     Dates: start: 20080201, end: 20090901
  3. CORTANCYL [Suspect]
     Indication: RHEUMATOID ARTHRITIS
     Route: 048
     Dates: start: 20080201
  4. SPECIAFOLDINE [Suspect]
     Indication: RHEUMATOID ARTHRITIS
     Dosage: 1 TABLET A WEEK
     Route: 048
     Dates: start: 20080201, end: 20090901
  5. ENBREL [Suspect]
     Indication: RHEUMATOID ARTHRITIS
     Route: 058
     Dates: start: 20090101, end: 20090601
  6. METHOTREXATE [Concomitant]
     Indication: RHEUMATOID ARTHRITIS
     Dates: start: 20090701
  7. OROCAL [Concomitant]
     Indication: PROPHYLAXIS
     Route: 048
     Dates: start: 20080201
  8. OROCAL [Concomitant]
     Indication: STEROID THERAPY
  9. DOLIPRANE [Concomitant]
     Indication: RHEUMATOID ARTHRITIS
     Dosage: 1 TO 4 TABLETS A DAY

REACTIONS (2)
  - ACUTE LYMPHOCYTIC LEUKAEMIA [None]
  - LYMPHOCYTOSIS [None]
